FAERS Safety Report 6756959-0 (Version None)
Quarter: 2010Q2

REPORT INFORMATION
  Report Type: 
  Country: None (occurrence: None)
  Receive Date: 20100603
  Receipt Date: 20100603
  Transmission Date: 20101027
  Serious: Yes (Hospitalization)
  Sender: FDA-Public Use
  Company Number: None

PATIENT
  Age: 58 Year
  Sex: Male
  Weight: 196 kg

DRUGS (1)
  1. LINEZOLID [Suspect]
     Indication: CELLULITIS
     Dosage: 600 MG BID PO
     Route: 048
     Dates: start: 20100104, end: 20100115

REACTIONS (1)
  - ANAEMIA [None]
